FAERS Safety Report 23561372 (Version 1)
Quarter: 2024Q1

REPORT INFORMATION
  Report Type: Other
  Country: JP (occurrence: None)
  Receive Date: 20240224
  Receipt Date: 20240224
  Transmission Date: 20240410
  Serious: Yes (Other)
  Sender: FDA-Public Use
  Company Number: JP-ROCHE-3514832

PATIENT
  Age: 41 Year
  Sex: Female

DRUGS (1)
  1. BEVACIZUMAB [Suspect]
     Active Substance: BEVACIZUMAB
     Indication: Non-small cell lung cancer
     Dosage: 17 CYCLES
     Route: 065

REACTIONS (1)
  - Sepsis [Unknown]
